FAERS Safety Report 6375409-X (Version None)
Quarter: 2009Q3

REPORT INFORMATION
  Report Type: 
  Country: None (occurrence: None)
  Receive Date: 20090921
  Receipt Date: 20090625
  Transmission Date: 20100115
  Serious: Yes (Other)
  Sender: FDA-Public Use
  Company Number: DSA_33907_2009

PATIENT
  Sex: Male

DRUGS (5)
  1. XENAZINE [Suspect]
     Indication: HUNTINGTON'S CHOREA
     Dosage: 25 MG TID
     Dates: start: 20090325, end: 20090607
  2. ZOLOFT /01011402/ [Concomitant]
  3. BACLOFEN [Concomitant]
  4. ATIVAN [Concomitant]
  5. PREVACID [Concomitant]

REACTIONS (2)
  - MALAISE [None]
  - SUICIDAL IDEATION [None]
